FAERS Safety Report 8073650-1 (Version None)
Quarter: 2012Q1

REPORT INFORMATION
  Report Type: 
  Country: None (occurrence: None)
  Receive Date: 20120126
  Receipt Date: 20120118
  Transmission Date: 20120608
  Serious: Yes (Death, Hospitalization)
  Sender: FDA-Public Use
  Company Number: IT-ROCHE-1015428

PATIENT
  Sex: Female
  Weight: 45 kg

DRUGS (9)
  1. ACTEMRA [Suspect]
     Indication: RHEUMATOID ARTHRITIS
     Route: 042
     Dates: start: 20100422, end: 20110902
  2. VFEND [Concomitant]
  3. KONAKION [Concomitant]
  4. TRANEXAMIC ACID [Concomitant]
  5. METHYLPREDNISOLONE [Concomitant]
     Route: 042
  6. BRONCHO-VAXOM [Concomitant]
     Route: 048
  7. ZYVOX [Concomitant]
     Route: 048
  8. ACETAMINOPHEN [Concomitant]
  9. MERREM [Concomitant]
     Route: 042

REACTIONS (3)
  - SEPTIC SHOCK [None]
  - DISSEMINATED INTRAVASCULAR COAGULATION [None]
  - SEPSIS [None]
